FAERS Safety Report 7234803-5 (Version None)
Quarter: 2011Q1

REPORT INFORMATION
  Report Type: 
  Country: None (occurrence: None)
  Receive Date: 20110114
  Receipt Date: 20110114
  Transmission Date: 20110831
  Serious: Yes (Hospitalization)
  Sender: FDA-Public Use
  Company Number: None

PATIENT
  Sex: Female
  Weight: 61.4 kg

DRUGS (3)
  1. GEMCITABINE [Suspect]
     Indication: PANCREATIC CARCINOMA
     Dosage: 1000MG/M2 D 1,8,15 OF 28
     Dates: start: 20101229
  2. SEE IMAGE [Concomitant]
  3. ERLOTINIB [Suspect]
     Indication: PANCREATIC CARCINOMA
     Dosage: INTERMITTENT
     Dates: start: 20101230, end: 20110102

REACTIONS (3)
  - PNEUMONIA [None]
  - HAEMOGLOBIN DECREASED [None]
  - DEVICE OCCLUSION [None]
